FAERS Safety Report 9272655 (Version 1)
Quarter: 2013Q2

REPORT INFORMATION
  Report Type: Spontaneous
  Country: US (occurrence: US)
  Receive Date: 20130506
  Receipt Date: 20130506
  Transmission Date: 20140414
  Serious: Yes (Other)
  Sender: FDA-Public Use
  Company Number: US-JNJFOC-20040807746

PATIENT
  Age: 37 Year
  Sex: Female

DRUGS (14)
  1. MOTRIN [Suspect]
     Indication: HEADACHE
     Dosage: UP TO 4 DAILY
     Dates: end: 2001
  2. ACETAMINOPHEN/CODEINE [Suspect]
     Indication: PAIN
     Dosage: 1-2 TABS Q6H, PRN, PO
     Route: 048
     Dates: start: 20010521
  3. CELEBREX [Suspect]
     Indication: PAIN
     Route: 048
     Dates: start: 19990511, end: 199906
  4. VIOXX [Suspect]
     Indication: PAIN
     Dosage: 25 MG, 1-2 TABS QD, PRN, PO
     Route: 048
     Dates: start: 19990824, end: 2000
  5. VIOXX [Suspect]
     Indication: PAIN
     Dosage: 12.5 MG, 1-2 TABS QD, PRN, PO
     Route: 048
     Dates: start: 19990802
  6. VIOXX [Suspect]
     Indication: PAIN
     Dosage: 25 MG, QD, PRN, PO
     Route: 048
     Dates: start: 20000914, end: 2001
  7. ULTRAM [Suspect]
     Indication: PAIN
     Dosage: 50 MG, 1-2 TABS Q6H, PRN, PO
     Route: 048
     Dates: start: 19990609
  8. ULTRAM [Suspect]
     Indication: PAIN
     Dosage: 50 MG Q6H, PRN, PO
     Route: 048
     Dates: start: 20000714
  9. KETOROLAC [Suspect]
     Indication: PAIN
     Dosage: 10 MG Q6H, PRN, PO
     Route: 048
     Dates: start: 20010213
  10. VICOPROFEN [Suspect]
     Indication: PAIN
     Dosage: 1 TAB Q8H, PO
     Route: 048
     Dates: start: 20010327
  11. ACETAMINOPHEN\HYDROCODONE [Suspect]
     Indication: PAIN
     Dosage: 5/500, Q4-6H, PRN, PO
     Route: 048
     Dates: start: 20010416
  12. ACETAMINOPHEN\HYDROCODONE [Suspect]
     Indication: PAIN
     Dosage: 5/500, Q6H, PRN, PO
     Route: 048
     Dates: start: 20010420
  13. EXCEDRIN [Suspect]
     Indication: HEADACHE
     Dates: end: 2001
  14. ACETAMINOPHEN [Suspect]
     Indication: HEADACHE
     Dates: end: 2001

REACTIONS (2)
  - Nephrotic syndrome [Recovering/Resolving]
  - Oedema [Unknown]
